FAERS Safety Report 23099375 (Version 1)
Quarter: 2023Q4

REPORT INFORMATION
  Report Type: Spontaneous
  Country: AU (occurrence: AU)
  Receive Date: 20231024
  Receipt Date: 20231024
  Transmission Date: 20240110
  Serious: Yes (Other)
  Sender: FDA-Public Use
  Company Number: AU-AMGEN-AUSSP2023184874

PATIENT
  Age: 53 Year
  Sex: Female

DRUGS (5)
  1. PROLIA [Suspect]
     Active Substance: DENOSUMAB
     Indication: Product used for unknown indication
     Dosage: UNK
     Route: 065
     Dates: start: 2023
  2. CALTRATE [Concomitant]
     Active Substance: CALCIUM CARBONATE
  3. CALCIUM [Concomitant]
     Active Substance: CALCIUM
  4. CHOLECALCIFEROL [Concomitant]
     Active Substance: CHOLECALCIFEROL
  5. VITAMIN C [Concomitant]
     Active Substance: ASCORBIC ACID

REACTIONS (93)
  - Colitis ulcerative [Unknown]
  - Suicidal ideation [Unknown]
  - Melaena [Unknown]
  - Haematochezia [Unknown]
  - Seizure [Unknown]
  - Yellow skin [Unknown]
  - Asthma [Unknown]
  - Abdominal distension [Unknown]
  - Abdominal pain upper [Unknown]
  - Accident at work [Unknown]
  - Adjustment disorder [Unknown]
  - Alopecia [Unknown]
  - Anxiety disorder [Unknown]
  - Aphonia [Unknown]
  - Arthralgia [Unknown]
  - Arthropathy [Unknown]
  - Asthenia [Unknown]
  - Back pain [Unknown]
  - Blister [Unknown]
  - Blood cholesterol increased [Unknown]
  - Blood urine present [Unknown]
  - Bone pain [Unknown]
  - Breast discharge [Unknown]
  - Breast mass [Unknown]
  - Bruxism [Unknown]
  - Catheter site ulcer [Unknown]
  - Chest pain [Unknown]
  - Chromaturia [Unknown]
  - Contusion [Unknown]
  - Decreased appetite [Unknown]
  - Depression [Unknown]
  - Diaphragmalgia [Unknown]
  - Dizziness [Unknown]
  - Dry mouth [Unknown]
  - Dry skin [Unknown]
  - Dysuria [Unknown]
  - Ear congestion [Unknown]
  - Erythema [Unknown]
  - Eye pain [Unknown]
  - Flatulence [Unknown]
  - Gastritis [Unknown]
  - Gastrooesophageal reflux disease [Unknown]
  - Headache [Unknown]
  - Heart rate irregular [Unknown]
  - Hypertension [Unknown]
  - Hypoaesthesia [Unknown]
  - Impaired healing [Unknown]
  - Incision site impaired healing [Unknown]
  - Inflammation [Unknown]
  - Injection site reaction [Unknown]
  - Insomnia [Unknown]
  - Joint injury [Unknown]
  - Lip swelling [Unknown]
  - Loose tooth [Unknown]
  - Lung disorder [Unknown]
  - Lymphadenopathy [Unknown]
  - Meniscus injury [Unknown]
  - Mouth swelling [Unknown]
  - Mouth ulceration [Unknown]
  - Muscle spasms [Unknown]
  - Musculoskeletal stiffness [Unknown]
  - Myalgia [Unknown]
  - Nasopharyngitis [Unknown]
  - Neck pain [Unknown]
  - Oesophagitis [Unknown]
  - Oral pain [Unknown]
  - Oropharyngeal pain [Unknown]
  - Osteoarthritis [Unknown]
  - Pain [Unknown]
  - Pain in jaw [Unknown]
  - Peripheral swelling [Unknown]
  - Pollakiuria [Unknown]
  - Post procedural swelling [Unknown]
  - Presyncope [Unknown]
  - Procedural pain [Unknown]
  - Pruritus [Unknown]
  - Pyrexia [Unknown]
  - Retracted nipple [Unknown]
  - Sensation of foreign body [Unknown]
  - Skin exfoliation [Unknown]
  - Skin irritation [Unknown]
  - Skin lesion [Unknown]
  - Sleep apnoea syndrome [Unknown]
  - Stress [Unknown]
  - Swelling face [Unknown]
  - Swelling of eyelid [Unknown]
  - Urine abnormality [Unknown]
  - Swollen tongue [Unknown]
  - Vascular access site bruising [Unknown]
  - Vomiting [Unknown]
  - Weight abnormal [Unknown]
  - Wrist fracture [Unknown]
  - Groin pain [Unknown]
